FAERS Safety Report 7380895-2 (Version None)
Quarter: 2011Q1

REPORT INFORMATION
  Report Type: 
  Country: None (occurrence: None)
  Receive Date: 20110329
  Receipt Date: 20110316
  Transmission Date: 20110831
  Serious: Yes (Other)
  Sender: FDA-Public Use
  Company Number: PHHY2011CA17009

PATIENT
  Sex: Female

DRUGS (3)
  1. EXJADE [Suspect]
     Dosage: 4-5 PILLS
     Route: 048
     Dates: end: 20110225
  2. EXJADE [Suspect]
     Dosage: UNK
     Route: 048
  3. EXJADE [Suspect]
     Indication: PYRUVATE KINASE DEFICIENCY ANAEMIA
     Dosage: UNK
     Route: 048
     Dates: end: 20110214

REACTIONS (2)
  - DRUG EXPOSURE DURING PREGNANCY [None]
  - ABORTION SPONTANEOUS [None]
